FAERS Safety Report 12448460 (Version 1)
Quarter: 2016Q2

REPORT INFORMATION
  Report Type: Spontaneous
  Country: CN (occurrence: CN)
  Receive Date: 20160608
  Receipt Date: 20160608
  Transmission Date: 20160815
  Serious: Yes (Other)
  Sender: FDA-Public Use
  Company Number: CN-BAYER-2016-111368

PATIENT
  Age: 64 Year
  Sex: Female

DRUGS (1)
  1. IOPROMIDE [Suspect]
     Active Substance: IOPROMIDE
     Indication: COMPUTERISED TOMOGRAM HEAD
     Dosage: 100 ML, ONCE
     Route: 042
     Dates: start: 20150518, end: 20150518

REACTIONS (2)
  - Anaphylactic reaction [None]
  - Gastrointestinal haemorrhage [None]

NARRATIVE: CASE EVENT DATE: 20150518
